FAERS Safety Report 5232649-0 (Version None)
Quarter: 2007Q1

REPORT INFORMATION
  Report Type: 
  Country: None (occurrence: None)
  Receive Date: 20070207
  Receipt Date: 20070117
  Transmission Date: 20070707
  Serious: Yes (Death, Hospitalization)
  Sender: FDA-Public Use
  Company Number: US-BRISTOL-MYERS SQUIBB COMPANY-13663448

PATIENT
  Age: 79 Year
  Sex: Male

DRUGS (9)
  1. COUMADIN [Interacting]
     Indication: ATRIAL FIBRILLATION
     Dosage: ADDITIONAL DOSE OF 2.5MG DAILY (UNKNOWN START TO JAN (UNKNOWN DATE) 2006)
     Route: 048
     Dates: start: 20060101, end: 20060119
  2. AMIODARONE HCL [Interacting]
     Indication: ATRIAL FIBRILLATION
     Dates: start: 20050607, end: 20050621
  3. PACERONE [Suspect]
     Indication: ATRIAL FIBRILLATION
     Dosage: 200 MG ON EVEN DAYS; 100 MG ON ODD DAYS
     Dates: start: 20050622, end: 20051230
  4. AVELOX [Concomitant]
  5. HYZAAR [Concomitant]
  6. INDERAL LA [Concomitant]
  7. ZOLOFT [Concomitant]
  8. VITAMIN B-12 [Concomitant]
  9. ATIVAN [Concomitant]

REACTIONS (18)
  - ASTHENIA [None]
  - BALANCE DISORDER [None]
  - BLOOD GLUCOSE INCREASED [None]
  - BLOOD PRESSURE DECREASED [None]
  - BLOOD THYROID STIMULATING HORMONE INCREASED [None]
  - CARDIO-RESPIRATORY ARREST [None]
  - COUGH [None]
  - DRUG INTERACTION [None]
  - DYSPNOEA [None]
  - HAEMATOCRIT DECREASED [None]
  - HEPATIC ENZYME INCREASED [None]
  - HYPOTHYROIDISM [None]
  - INTERNATIONAL NORMALISED RATIO INCREASED [None]
  - OXYGEN SATURATION DECREASED [None]
  - PNEUMONIA [None]
  - PULMONARY TOXICITY [None]
  - PYREXIA [None]
  - RESPIRATORY FAILURE [None]
